FAERS Safety Report 4512853-7 (Version None)
Quarter: 2004Q4

REPORT INFORMATION
  Report Type: 
  Country: None (occurrence: None)
  Receive Date: 20041116
  Receipt Date: 20041116
  Transmission Date: 20050328
  Serious: Yes (Hospitalization)
  Sender: FDA-Public Use
  Company Number: None

PATIENT
  Age: 40 Year
  Sex: Female
  Weight: 53.5244 kg

DRUGS (1)
  1. DILTIAZ ER (CO) GENERIC FOR CARDIZEN CL 120MG ONCE DAILY [Suspect]
     Indication: ANGINA PECTORIS
     Dosage: 120MG ONCE DAILY

REACTIONS (26)
  - BACK PAIN [None]
  - BURNING SENSATION [None]
  - CARCINOMA [None]
  - CARDIOVASCULAR DISORDER [None]
  - COLON CANCER [None]
  - CYSTITIS [None]
  - DIZZINESS [None]
  - DYSPHAGIA [None]
  - EATING DISORDER [None]
  - FATIGUE [None]
  - FEELING ABNORMAL [None]
  - FLUSHING [None]
  - HEART RATE INCREASED [None]
  - HYPERHIDROSIS [None]
  - HYPERSOMNIA [None]
  - MARKEDLY REDUCED DIETARY INTAKE [None]
  - MENTAL DISORDER [None]
  - MOVEMENT DISORDER [None]
  - NERVOUS SYSTEM DISORDER [None]
  - OVARIAN CYST [None]
  - PAIN [None]
  - PHOTOSENSITIVITY REACTION [None]
  - POLYDIPSIA [None]
  - SKIN DISORDER [None]
  - SKIN ODOUR ABNORMAL [None]
  - WEIGHT DECREASED [None]
